FAERS Safety Report 5872828-2 (Version None)
Quarter: 2008Q3

REPORT INFORMATION
  Report Type: 
  Country: None (occurrence: None)
  Receive Date: 20080905
  Receipt Date: 20080825
  Transmission Date: 20090109
  Serious: Yes (Other)
  Sender: FDA-Public Use
  Company Number: AU-PFIZER INC-2008065851

PATIENT
  Age: 85 Year
  Sex: Female

DRUGS (9)
  1. SERTRALINE [Suspect]
  2. QUETIAPINE [Suspect]
     Indication: PSYCHOTIC BEHAVIOUR
  3. OMEPRAZOLE [Suspect]
  4. TIOTROPIUM BROMIDE [Concomitant]
  5. DONEPEZIL HCL [Concomitant]
  6. SALBUTAMOL [Concomitant]
  7. DILTIAZEM HCL [Concomitant]
  8. FRUSEMIDE [Concomitant]
  9. ACETYLSALICYLIC ACID SRT [Concomitant]

REACTIONS (1)
  - NEUTROPENIA [None]
